FAERS Safety Report 4490067-7 (Version None)
Quarter: 2004Q4

REPORT INFORMATION
  Report Type: 
  Country: None (occurrence: None)
  Receive Date: 20041027
  Receipt Date: 20041012
  Transmission Date: 20050328
  Serious: Yes (Other)
  Sender: FDA-Public Use
  Company Number: 2004-BP-09736RO

PATIENT
  Age: 69 Year
  Sex: Female

DRUGS (8)
  1. LEUCOVORIN CALCIUM [Suspect]
     Indication: COLON CANCER
     Dosage: 75 MG, PO
     Route: 048
     Dates: start: 20040703, end: 20040703
  2. UFT CAPS (TEGAFUR + URACIL) (TEGAFUR URACIL) [Suspect]
     Indication: COLON CANCER
     Dosage: 4 CAPS/DAY, PO
     Route: 048
     Dates: start: 20040703, end: 20040703
  3. ABILIT (SULPIRIDE) [Concomitant]
  4. CEROCRAL (IFENPRODIL TARTRATE) [Concomitant]
  5. MARZULENE (SODIUM GUALENATE) [Concomitant]
  6. ROHYPNOL (FLUNITRAZEPAM) [Concomitant]
  7. RHYTHMY (RILMAZAFONE) [Concomitant]
  8. MEVASTIN (LOVASTATIN) [Concomitant]

REACTIONS (1)
  - DIARRHOEA [None]
